FAERS Safety Report 12563787 (Version 3)
Quarter: 2016Q4

REPORT INFORMATION
  Report Type: Report from Study
  Country: US (occurrence: US)
  Receive Date: 20160716
  Receipt Date: 20161028
  Transmission Date: 20170207
  Serious: Yes (Death, Life-Threatening, Hospitalization, Other)
  Sender: FDA-Public Use
  Company Number: US-AMGEN-USACT2016088816

PATIENT
  Age: 46 Year
  Sex: Female

DRUGS (1)
  1. BLINATUMOMAB [Suspect]
     Active Substance: BLINATUMOMAB
     Indication: B PRECURSOR TYPE ACUTE LEUKAEMIA
     Dosage: 28 MUG, CONTINUOUS INFUSION
     Route: 042
     Dates: start: 20160505, end: 20160510

REACTIONS (10)
  - Lymphatic disorder [Unknown]
  - Encephalopathy [Unknown]
  - Seizure [Unknown]
  - Platelet count decreased [Unknown]
  - Cytokine release syndrome [Unknown]
  - Hypertension [Unknown]
  - Aspartate aminotransferase increased [Unknown]
  - Blood disorder [Unknown]
  - Alanine aminotransferase increased [Unknown]
  - Haemorrhage intracranial [Fatal]

NARRATIVE: CASE EVENT DATE: 20160517
